FAERS Safety Report 15688415 (Version 2)
Quarter: 2022Q2

REPORT INFORMATION
  Report Type: Spontaneous
  Country: CH (occurrence: CH)
  Receive Date: 20181205
  Receipt Date: 20220427
  Transmission Date: 20220721
  Serious: Yes (Life-Threatening, Hospitalization, Other)
  Sender: FDA-Public Use
  Company Number: CH-SM-2018-13909

PATIENT
  Age: 72 Year
  Sex: Male

DRUGS (15)
  1. VANCOCIN [Suspect]
     Active Substance: VANCOMYCIN HYDROCHLORIDE
     Indication: Staphylococcal sepsis
     Route: 042
     Dates: start: 20180907, end: 20180910
  2. VANCOCIN [Suspect]
     Active Substance: VANCOMYCIN HYDROCHLORIDE
     Dosage: UNTIL FURTHER NOTICE
     Route: 042
     Dates: start: 20180922
  3. KEFZOL [Suspect]
     Active Substance: CEFAZOLIN SODIUM
     Indication: Staphylococcal sepsis
     Route: 042
     Dates: start: 20180818, end: 20180907
  4. MEROPENEM [Suspect]
     Active Substance: MEROPENEM
     Indication: Staphylococcal sepsis
     Dates: start: 20180910, end: 20180917
  5. MEROPENEM [Suspect]
     Active Substance: MEROPENEM
     Dates: start: 20180924, end: 20181010
  6. ASPIRIN [Concomitant]
     Active Substance: ASPIRIN
     Dosage: 100 MILLIGRAM DAILY;
     Route: 048
  7. DUTASTERIDE\TAMSULOSIN [Concomitant]
     Active Substance: DUTASTERIDE\TAMSULOSIN
     Dosage: 1 DOSAGE FORMS DAILY; 1 DOSAGE FORM=0.5/0.4 MG
     Route: 048
  8. METFORMIN [Concomitant]
     Active Substance: METFORMIN HYDROCHLORIDE
     Dosage: 1000 MILLIGRAM DAILY;
     Route: 048
  9. CLARITHROMYCIN [Concomitant]
     Active Substance: CLARITHROMYCIN
     Dosage: 1000 MILLIGRAM DAILY;
     Route: 048
     Dates: start: 20180816, end: 20180817
  10. AMOXICILLIN\CLAVULANATE POTASSIUM [Concomitant]
     Active Substance: AMOXICILLIN\CLAVULANATE POTASSIUM
     Dosage: 13.2 GRAM DAILY;
     Route: 042
     Dates: start: 20180816, end: 20180818
  11. Pregabalin pfizer 75 mg [Concomitant]
     Dosage: 150 MILLIGRAM DAILY;
     Route: 048
     Dates: start: 20180824
  12. CEFEPIME HYDROCHLORIDE [Concomitant]
     Active Substance: CEFEPIME HYDROCHLORIDE
     Dosage: 6 GRAM DAILY;
     Dates: start: 20180908, end: 20180908
  13. CUBICIN [Concomitant]
     Active Substance: DAPTOMYCIN
     Dosage: 850 MILLIGRAM DAILY;
     Route: 042
     Dates: start: 20180917, end: 20180921
  14. PREDNISOLONE [Concomitant]
     Active Substance: PREDNISOLONE
     Route: 048
     Dates: start: 20180907, end: 20180910
  15. XYZAL [Concomitant]
     Active Substance: LEVOCETIRIZINE DIHYDROCHLORIDE
     Route: 048
     Dates: start: 20180907, end: 20180912

REACTIONS (1)
  - Drug reaction with eosinophilia and systemic symptoms [Not Recovered/Not Resolved]

NARRATIVE: CASE EVENT DATE: 20180908
